FAERS Safety Report 21563632 (Version 3)
Quarter: 2023Q1

REPORT INFORMATION
  Report Type: Spontaneous
  Country: US (occurrence: US)
  Receive Date: 20221108
  Receipt Date: 20230309
  Transmission Date: 20230417
  Serious: No
  Sender: FDA-Public Use
  Company Number: US-JNJFOC-20221052053

PATIENT
  Sex: Female

DRUGS (20)
  1. BALVERSA [Suspect]
     Active Substance: ERDAFITINIB
     Indication: Product used for unknown indication
     Route: 048
     Dates: start: 20220428
  2. BALVERSA [Suspect]
     Active Substance: ERDAFITINIB
     Route: 048
  3. BALVERSA [Suspect]
     Active Substance: ERDAFITINIB
     Route: 048
  4. BALVERSA [Suspect]
     Active Substance: ERDAFITINIB
     Route: 048
  5. BALVERSA [Suspect]
     Active Substance: ERDAFITINIB
     Route: 048
  6. ELIQUIS [Concomitant]
     Active Substance: APIXABAN
     Indication: Atrial fibrillation
     Route: 065
  7. OMEPRAZOLE [Concomitant]
     Active Substance: OMEPRAZOLE
     Indication: Dyspepsia
     Route: 065
  8. METOPROLOL TARTRATE [Concomitant]
     Active Substance: METOPROLOL TARTRATE
     Indication: Blood pressure measurement
     Route: 065
  9. ROSUVASTATIN [Concomitant]
     Active Substance: ROSUVASTATIN
     Indication: Blood pressure measurement
     Route: 065
  10. TORSEMIDE [Concomitant]
     Active Substance: TORSEMIDE
     Indication: Peripheral swelling
     Dosage: AS NEEDED
     Route: 065
  11. FLUTICASONE PROPIONATE [Concomitant]
     Active Substance: FLUTICASONE PROPIONATE
     Dosage: 2 SPRAYS
     Route: 065
  12. LANTUS [Concomitant]
     Active Substance: INSULIN GLARGINE
     Indication: Diabetes mellitus
     Dosage: 18 UNITS
     Route: 065
  13. LANTUS [Concomitant]
     Active Substance: INSULIN GLARGINE
     Dosage: 20 UNITS
     Route: 065
  14. NOVOLOG [Concomitant]
     Active Substance: INSULIN ASPART
     Indication: Diabetes mellitus
  15. THERAFLEX [CHONDROITIN SULFATE SODIUM;GLUCOSAMINE HYDROCHLORIDE] [Concomitant]
     Dosage: 1500+1200MG
     Route: 065
  16. VITAMIN B COMPLEX [Concomitant]
     Active Substance: CYANOCOBALAMIN\DEXPANTHENOL\NIACINAMIDE\PYRIDOXINE HYDROCHLORIDE\RIBOFLAVIN 5^-PHOSPHATE SODIUM\THIA
  17. FERGON [Concomitant]
     Active Substance: FERROUS GLUCONATE
     Indication: Anaemia
  18. TYLENOL [Concomitant]
     Active Substance: ACETAMINOPHEN
  19. TYLENOL PM [Concomitant]
     Active Substance: ACETAMINOPHEN\DIPHENHYDRAMINE
  20. VITAMIN D3 [Concomitant]
     Active Substance: CHOLECALCIFEROL

REACTIONS (10)
  - Skin exfoliation [Unknown]
  - Asthenia [Unknown]
  - Onychoclasis [Unknown]
  - Paraesthesia oral [Unknown]
  - Blister [Unknown]
  - Temperature intolerance [Unknown]
  - Pain in extremity [Unknown]
  - Gait inability [Unknown]
  - Myalgia [Unknown]
  - Arthralgia [Unknown]
